FAERS Safety Report 10022175 (Version 1)
Quarter: 2014Q1

REPORT INFORMATION
  Report Type: Spontaneous
  Country: GB (occurrence: GB)
  Receive Date: 20140319
  Receipt Date: 20140319
  Transmission Date: 20141002
  Serious: Yes (Other)
  Sender: FDA-Public Use
  Company Number: GB-GLAXOSMITHKLINE-B0975871A

PATIENT
  Age: 83 Year
  Sex: Female
  Weight: 66 kg

DRUGS (9)
  1. AVAMYS [Suspect]
  2. ADCAL-D3 [Concomitant]
     Indication: BONE DISORDER
     Route: 048
  3. VISCOTEARS [Concomitant]
  4. ZIMOVANE [Concomitant]
     Dosage: 3.75MG PER DAY
  5. ASPIRIN [Concomitant]
     Indication: HYPERTENSION
     Dosage: 75MG PER DAY
  6. LOSARTAN [Concomitant]
     Indication: HYPERTENSION
     Route: 048
  7. MEBEVERINE HYDROCHLORIDE [Concomitant]
     Indication: ABDOMINAL DISCOMFORT
     Route: 048
  8. SIMVASTATIN [Concomitant]
     Indication: BLOOD CHOLESTEROL INCREASED
     Route: 048
  9. DOXAZOSIN [Concomitant]
     Dosage: 1MG PER DAY

REACTIONS (1)
  - Vision blurred [Recovered/Resolved]
